FAERS Safety Report 8185310-7 (Version None)
Quarter: 2012Q1

REPORT INFORMATION
  Report Type: 
  Country: None (occurrence: None)
  Receive Date: 20120305
  Receipt Date: 20120227
  Transmission Date: 20120608
  Serious: Yes (Other)
  Sender: FDA-Public Use
  Company Number: PHHY2012SE017520

PATIENT
  Sex: Male
  Weight: 90.5 kg

DRUGS (3)
  1. ZOMETA [Suspect]
     Dosage: 4 MG/5 ML VERY SIXTH WEEK
     Dates: start: 20081217, end: 20111012
  2. NITROMEX [Concomitant]
     Dosage: UNK UKN, UNK
  3. SUTENT [Concomitant]
     Dosage: UNK UKN, UNK

REACTIONS (3)
  - PAIN IN JAW [None]
  - BONE PAIN [None]
  - OSTEONECROSIS OF JAW [None]
